FAERS Safety Report 6130498-2 (Version None)
Quarter: 2009Q1

REPORT INFORMATION
  Report Type: 
  Country: None (occurrence: None)
  Receive Date: 20090323
  Receipt Date: 20090308
  Transmission Date: 20090719
  Serious: Yes (Other)
  Sender: FDA-Public Use
  Company Number: 2007S1006320

PATIENT
  Age: 62 Year
  Sex: Female
  Weight: 75.7507 kg

DRUGS (10)
  1. PHOSPHOSODA FLAVOR NOT SPECIFIED [Suspect]
     Indication: COLONOSCOPY
     Dosage: PO
     Route: 048
     Dates: start: 20051002, end: 20051003
  2. DIOVAN [Concomitant]
  3. HYDROCHLOROTHIAZIDE [Concomitant]
  4. PREMARIN [Concomitant]
  5. ZOCOR [Concomitant]
  6. FLONASE [Concomitant]
  7. ZANTAC [Concomitant]
  8. CENTRUM [Concomitant]
  9. COMPAZINE [Concomitant]
  10. RANITIDINE [Concomitant]

REACTIONS (6)
  - DRUG TOXICITY [None]
  - HYPERPHOSPHATAEMIA [None]
  - HYPOVOLAEMIA [None]
  - INJURY [None]
  - RENAL FAILURE ACUTE [None]
  - RENAL FAILURE CHRONIC [None]
